FAERS Safety Report 20825791 (Version 2)
Quarter: 2022Q3

REPORT INFORMATION
  Report Type: Report from Study
  Country: DE (occurrence: DE)
  Receive Date: 20220513
  Receipt Date: 20220913
  Transmission Date: 20221027
  Serious: Yes (Other)
  Sender: FDA-Public Use
  Company Number: DE-JNJFOC-20210660164

PATIENT
  Age: 14 Year
  Sex: Male
  Weight: 64 kg

DRUGS (3)
  1. SIMPONI [Suspect]
     Active Substance: GOLIMUMAB
     Indication: Juvenile idiopathic arthritis
     Route: 058
     Dates: start: 20200526
  2. METHOTREXATE [Concomitant]
     Active Substance: METHOTREXATE
     Dates: start: 20080501
  3. SULFASALAZINE [Concomitant]
     Active Substance: SULFASALAZINE

REACTIONS (5)
  - Radius fracture [Recovered/Resolved]
  - Juvenile idiopathic arthritis [Not Recovered/Not Resolved]
  - COVID-19 [Recovered/Resolved]
  - Off label use [Unknown]
  - Product use in unapproved indication [Unknown]

NARRATIVE: CASE EVENT DATE: 20200526
